FAERS Safety Report 6436632-9 (Version None)
Quarter: 2009Q4

REPORT INFORMATION
  Report Type: 
  Country: None (occurrence: None)
  Receive Date: 20091111
  Receipt Date: 20091104
  Transmission Date: 20100525
  Serious: Yes (Other)
  Sender: FDA-Public Use
  Company Number: IT-B.I. PHARMACEUTICALS,INC./RIDGEFIELD-2009-DE-06890GD

PATIENT
  Sex: Male

DRUGS (6)
  1. TELMISARTAN [Suspect]
     Indication: HYPERTENSION
     Dosage: 80 MG
  2. INSULIN [Concomitant]
     Indication: TYPE 2 DIABETES MELLITUS
  3. ABACAVIR [Concomitant]
     Indication: HIV INFECTION CDC CATEGORY C3
     Dates: start: 20060101
  4. 3TC [Concomitant]
     Indication: HIV INFECTION CDC CATEGORY C3
     Dates: start: 20060101
  5. SAQUINAVIR [Concomitant]
     Indication: HIV INFECTION CDC CATEGORY C3
     Dates: start: 20060101
  6. RITONAVIR [Concomitant]
     Indication: HIV INFECTION CDC CATEGORY C3
     Dates: start: 20060101

REACTIONS (1)
  - HYPOGLYCAEMIC SEIZURE [None]
